FAERS Safety Report 7931895-2 (Version None)
Quarter: 2011Q4

REPORT INFORMATION
  Report Type: 
  Country: None (occurrence: None)
  Receive Date: 20111121
  Receipt Date: 20111115
  Transmission Date: 20120403
  Serious: Yes (Life-Threatening, Other)
  Sender: FDA-Public Use
  Company Number: NL-ROXANE LABORATORIES, INC.-2011-RO-01653RO

PATIENT
  Age: 42 Year
  Sex: Female

DRUGS (12)
  1. PROPRANOLOL [Suspect]
     Dosage: 60 MG
     Route: 048
  2. PROPOFOL [Suspect]
     Indication: ANAESTHESIA
     Route: 042
  3. PROPOFOL [Suspect]
     Dosage: 100 MG
     Route: 042
  4. SINTROM [Suspect]
     Indication: ATRIAL FIBRILLATION
     Route: 048
  5. PROPOFOL [Suspect]
     Dosage: 100 MG
     Route: 042
  6. ISOFLURANE [Suspect]
     Indication: MAINTENANCE OF ANAESTHESIA
  7. DOXAZOSIN MESYLATE [Suspect]
     Route: 048
  8. SUFENTANIL CITRATE [Suspect]
     Indication: ANAESTHESIA
     Route: 042
  9. SODIUM NITROPRUSSIDE [Suspect]
     Indication: HYPERTENSION
     Route: 042
  10. FLECAINIDE ACETATE [Suspect]
     Indication: ATRIAL FIBRILLATION
     Dosage: 100 MG
     Route: 048
  11. ROCURONIUM BROMIDE [Suspect]
     Indication: ANAESTHESIA
     Route: 042
  12. SUFENTANIL CITRATE [Suspect]
     Route: 042

REACTIONS (5)
  - SINUS BRADYCARDIA [None]
  - HYPERTENSION [None]
  - HYPOMAGNESAEMIA [None]
  - ELECTROCARDIOGRAM QT PROLONGED [None]
  - TORSADE DE POINTES [None]
